FAERS Safety Report 22640253 (Version 2)
Quarter: 2023Q4

REPORT INFORMATION
  Report Type: Report from Study
  Country: IN (occurrence: IN)
  Receive Date: 20230626
  Receipt Date: 20231207
  Transmission Date: 20240110
  Serious: Yes (Other)
  Sender: FDA-Public Use
  Company Number: IN-002147023-NVSC2021IN197592

PATIENT
  Age: 69 Year
  Sex: Male

DRUGS (2)
  1. TASIGNA [Suspect]
     Active Substance: NILOTINIB
     Indication: Chronic myeloid leukaemia
     Dosage: 400 MG, BID
     Route: 065
     Dates: start: 20151128, end: 20210819
  2. TASIGNA [Suspect]
     Active Substance: NILOTINIB
     Dosage: 300 MG, BID
     Route: 048

REACTIONS (9)
  - Toothache [Recovered/Resolved]
  - COVID-19 [Recovered/Resolved]
  - Weight decreased [Recovered/Resolved]
  - Muscle spasms [Unknown]
  - Weight increased [Unknown]
  - Increased appetite [Unknown]
  - Haemoglobin decreased [Unknown]
  - Platelet count decreased [Unknown]
  - Pain [Unknown]

NARRATIVE: CASE EVENT DATE: 20210819
